FAERS Safety Report 8058421-4 (Version None)
Quarter: 2012Q1

REPORT INFORMATION
  Report Type: 
  Country: None (occurrence: None)
  Receive Date: 20120120
  Receipt Date: 20120110
  Transmission Date: 20120608
  Serious: Yes (Death, Hospitalization, Other)
  Sender: FDA-Public Use
  Company Number: US-JNJFOC-NSADSS2003007578

PATIENT
  Sex: Male
  Weight: 63.5 kg

DRUGS (23)
  1. REMICADE [Suspect]
     Indication: CROHN'S DISEASE
     Route: 041
     Dates: start: 20000817
  2. REMICADE [Suspect]
     Route: 041
     Dates: start: 20001105
  3. REMICADE [Suspect]
     Route: 041
     Dates: start: 20000203
  4. PREDNISONE [Concomitant]
  5. REMICADE [Suspect]
     Route: 041
     Dates: start: 20020621
  6. MERCAPTOPURINE [Suspect]
     Indication: CROHN'S DISEASE
     Dosage: 25MG AM, 25MG PM
     Dates: start: 19991101, end: 20010201
  7. MERCAPTOPURINE [Suspect]
     Dosage: 25MG AM, 25MG PM
     Dates: start: 19970701
  8. IMURAN [Concomitant]
     Dates: end: 20030208
  9. PRILOSEC [Concomitant]
     Dates: start: 20010801, end: 20030101
  10. REMICADE [Suspect]
     Route: 041
     Dates: start: 20030106
  11. REMICADE [Suspect]
     Route: 041
     Dates: start: 19991203
  12. REMICADE [Suspect]
     Route: 041
     Dates: start: 20000616
  13. MERCAPTOPURINE [Suspect]
     Dosage: 25MG AM, 25MG PM
     Dates: start: 19971201
  14. AZATHIOPRINE [Concomitant]
     Indication: CROHN'S DISEASE
     Route: 048
     Dates: start: 20010201, end: 20030208
  15. FOSAMAX [Concomitant]
     Route: 048
     Dates: start: 20021103, end: 20030201
  16. REMICADE [Suspect]
     Route: 041
     Dates: start: 20020927
  17. REMICADE [Suspect]
     Route: 041
     Dates: start: 20021115
  18. REMICADE [Suspect]
     Route: 041
     Dates: start: 20020211
  19. MERCAPTOPURINE [Suspect]
     Dosage: 25MG AM, 25MG PM
     Dates: start: 19980501
  20. REMICADE [Suspect]
     Route: 041
     Dates: start: 19990901
  21. REMICADE [Suspect]
     Route: 041
     Dates: start: 20020222
  22. REMICADE [Suspect]
     Route: 041
     Dates: start: 20020809
  23. CORTICOSTEROIDS [Concomitant]
     Dates: end: 20020301

REACTIONS (13)
  - LARYNGITIS [None]
  - NIGHT SWEATS [None]
  - CELLULITIS [None]
  - PYREXIA [None]
  - HEPATOSPLENIC T-CELL LYMPHOMA [None]
  - BACTERIAL INFECTION [None]
  - SINUS HEADACHE [None]
  - EPSTEIN-BARR VIRUS INFECTION [None]
  - FATIGUE [None]
  - VISION BLURRED [None]
  - LEUKOCYTOCLASTIC VASCULITIS [None]
  - THIRST [None]
  - PHARYNGITIS [None]
